FAERS Safety Report 6736286-8 (Version None)
Quarter: 2010Q2

REPORT INFORMATION
  Report Type: 
  Country: None (occurrence: None)
  Receive Date: 20100521
  Receipt Date: 20100513
  Transmission Date: 20101027
  Serious: Yes (Other)
  Sender: FDA-Public Use
  Company Number: BR-GENENTECH-301880

PATIENT
  Sex: Male
  Weight: 103 kg

DRUGS (2)
  1. RITUXIMAB [Suspect]
     Indication: RHEUMATOID ARTHRITIS
     Dosage: UNK
     Route: 050
     Dates: start: 20090901, end: 20090915
  2. RITUXIMAB [Suspect]
     Indication: WEGENER'S GRANULOMATOSIS

REACTIONS (4)
  - ARTHRALGIA [None]
  - BLOOD PRESSURE INCREASED [None]
  - EYE SWELLING [None]
  - LABORATORY TEST ABNORMAL [None]
